FAERS Safety Report 11077594 (Version 2)
Quarter: 2015Q2

REPORT INFORMATION
  Report Type: Spontaneous
  Country: US (occurrence: US)
  Receive Date: 20150430
  Receipt Date: 20150525
  Transmission Date: 20150821
  Serious: No
  Sender: FDA-Public Use
  Company Number: US-JNJFOC-20140302884

PATIENT
  Age: 58 Year
  Sex: Female
  Weight: 52.16 kg

DRUGS (7)
  1. LEVOTHYROXINE [Concomitant]
     Active Substance: LEVOTHYROXINE
     Indication: THYROID DISORDER
     Route: 048
  2. CYMBALTA [Concomitant]
     Active Substance: DULOXETINE HYDROCHLORIDE
     Indication: PAIN
     Route: 048
  3. CYMBALTA [Concomitant]
     Active Substance: DULOXETINE HYDROCHLORIDE
     Indication: MIGRAINE
     Route: 048
  4. ELMIRON [Suspect]
     Active Substance: PENTOSAN POLYSULFATE SODIUM
     Indication: CYSTITIS INTERSTITIAL
     Dosage: STARTED ABOUT 6 OR 7 YEARS AGO
     Route: 048
  5. FENTANYL. [Concomitant]
     Active Substance: FENTANYL
     Indication: MIGRAINE
     Route: 062
  6. HYOSCYAMINE [Concomitant]
     Active Substance: HYOSCYAMINE
     Indication: MUSCLE SPASMS
     Dosage: TWICE A DAY AS NEEDED
     Route: 048
  7. TOPIRAMATE. [Concomitant]
     Active Substance: TOPIRAMATE
     Indication: MIGRAINE
     Route: 048

REACTIONS (8)
  - Bedridden [Unknown]
  - Abdominal pain upper [Not Recovered/Not Resolved]
  - Drug ineffective [Not Recovered/Not Resolved]
  - Migraine [Not Recovered/Not Resolved]
  - Adverse event [Unknown]
  - Malaise [Unknown]
  - Asthenia [Not Recovered/Not Resolved]
  - Genital pain [Not Recovered/Not Resolved]

NARRATIVE: CASE EVENT DATE: 201403
